FAERS Safety Report 18634348 (Version 2)
Quarter: 2020Q4

REPORT INFORMATION
  Report Type: Report from Study
  Country: NO (occurrence: NO)
  Receive Date: 20201218
  Receipt Date: 20201221
  Transmission Date: 20210114
  Serious: Yes (Other)
  Sender: FDA-Public Use
  Company Number: NO-BAYER-2020-270921

PATIENT
  Age: 40 Year
  Sex: Female

DRUGS (1)
  1. MIRENA [Suspect]
     Active Substance: LEVONORGESTREL
     Indication: MENORRHAGIA
     Dosage: 20 ?G PER DAY CONTINOUSLY
     Route: 015
     Dates: start: 20201201, end: 20201201

REACTIONS (5)
  - Device use issue [None]
  - Procedural pain [Recovered/Resolved]
  - Device difficult to use [None]
  - Procedural haemorrhage [Recovered/Resolved]
  - Complication of device insertion [None]

NARRATIVE: CASE EVENT DATE: 20201201
